FAERS Safety Report 21813688 (Version 1)
Quarter: 2023Q1

REPORT INFORMATION
  Report Type: Spontaneous
  Country: US (occurrence: US)
  Receive Date: 20230104
  Receipt Date: 20230104
  Transmission Date: 20230417
  Serious: Yes (Other)
  Sender: FDA-Public Use
  Company Number: US-SUN PHARMACEUTICAL INDUSTRIES LTD-2022R1-371470

PATIENT
  Age: 65 Year
  Sex: Male

DRUGS (3)
  1. PREDNISONE [Suspect]
     Active Substance: PREDNISONE
     Indication: Skin cancer
     Dosage: UNK
     Route: 065
  2. CYCLOSPORINE [Suspect]
     Active Substance: CYCLOSPORINE
     Indication: Skin cancer
  3. SIROLIMUS [Suspect]
     Active Substance: SIROLIMUS
     Indication: Skin cancer
     Dosage: UNK
     Route: 065

REACTIONS (2)
  - Malignant sweat gland neoplasm [Unknown]
  - Transplant rejection [Recovering/Resolving]
